FAERS Safety Report 20561460 (Version 1)
Quarter: 2022Q1

REPORT INFORMATION
  Report Type: Spontaneous
  Country: US (occurrence: None)
  Receive Date: 20220228
  Receipt Date: 20220228
  Transmission Date: 20220423
  Serious: Yes (Other)
  Sender: FDA-Public Use
  Company Number: None

PATIENT
  Age: 45 Year
  Sex: Female
  Weight: 53.52 kg

DRUGS (2)
  1. ESTRADIOL\TESTOSTERONE [Suspect]
     Active Substance: ESTRADIOL\TESTOSTERONE
  2. ESTRADIOL\TESTOSTERONE [Suspect]
     Active Substance: ESTRADIOL\TESTOSTERONE

REACTIONS (5)
  - Blood testosterone increased [None]
  - Hypertrichosis [None]
  - Alopecia [None]
  - Breast tenderness [None]
  - Cyst [None]

NARRATIVE: CASE EVENT DATE: 20220222
